FAERS Safety Report 20699578 (Version 2)
Quarter: 2022Q3

REPORT INFORMATION
  Report Type: Report from Study
  Country: FI (occurrence: FI)
  Receive Date: 20220412
  Receipt Date: 20220726
  Transmission Date: 20221026
  Serious: Yes (Hospitalization, Other)
  Sender: FDA-Public Use
  Company Number: FI-Accord-259933

PATIENT
  Age: 3 Decade
  Sex: Male

DRUGS (3)
  1. CLONAZEPAM [Interacting]
     Active Substance: CLONAZEPAM
  2. PREGABALIN [Interacting]
     Active Substance: PREGABALIN
  3. BUPRENORPHINE [Interacting]
     Active Substance: BUPRENORPHINE
     Route: 042

REACTIONS (5)
  - Myelopathy [Unknown]
  - Rhabdomyolysis [Unknown]
  - Substance abuse [Unknown]
  - Drug interaction [Unknown]
  - Compartment syndrome [Unknown]
